FAERS Safety Report 19886773 (Version 1)
Quarter: 2021Q3

REPORT INFORMATION
  Report Type: Other
  Country: CN (occurrence: CN)
  Receive Date: 20210928
  Receipt Date: 20210928
  Transmission Date: 20211014
  Serious: Yes (Other)
  Sender: FDA-Public Use
  Company Number: CN-ROCHE-2918157

PATIENT
  Sex: Female

DRUGS (4)
  1. BEVACIZUMAB. [Suspect]
     Active Substance: BEVACIZUMAB
     Indication: OVARIAN CANCER
     Route: 041
  2. CYCLOPHOSPHAMIDE. [Suspect]
     Active Substance: CYCLOPHOSPHAMIDE
     Indication: OVARIAN CANCER
     Dosage: ON DAY 1 OF CHEMOTHERAPY
     Route: 041
  3. AZITHROMYCIN ANHYDROUS. [Suspect]
     Active Substance: AZITHROMYCIN ANHYDROUS
     Indication: OVARIAN CANCER
     Dosage: ON DAY 1 INTRAVENOUS DRIP OF 40?60MG/M2
     Route: 041
  4. CISPLATIN. [Suspect]
     Active Substance: CISPLATIN
     Indication: OVARIAN CANCER
     Dosage: 60?80MG/M2  7 DAYS AS 1 CYCLE OF TREATMENT
     Route: 041

REACTIONS (4)
  - Myelosuppression [Recovering/Resolving]
  - Renal injury [Recovering/Resolving]
  - Liver injury [Recovering/Resolving]
  - Gastrointestinal perforation [Recovering/Resolving]
